FAERS Safety Report 8950676 (Version 1)
Quarter: 2012Q4

REPORT INFORMATION
  Report Type: Report from Study
  Country: US (occurrence: US)
  Receive Date: 20121207
  Receipt Date: 20121207
  Transmission Date: 20130627
  Serious: Yes (Life-Threatening)
  Sender: FDA-Public Use
  Company Number: US-MERCK-1212USA001896

PATIENT
  Age: 78 Year
  Sex: Male
  Weight: 77.1 kg

DRUGS (14)
  1. AZACITIDINE [Suspect]
     Indication: MYELODYSPLASTIC SYNDROME
     Dosage: 300 mg ,  BID,  on days 3-9
     Route: 048
     Dates: start: 20120827
  2. LENALIDOMIDE [Suspect]
     Indication: MYELODYSPLASTIC SYNDROME
     Dosage: 300 mg ,  BID,  on days 3-9
     Route: 048
     Dates: start: 20120827
  3. BLINDED PLACEBO [Suspect]
     Indication: MYELODYSPLASTIC SYNDROME
     Dosage: 300 mg ,  BID,  on days 3-9
     Route: 048
     Dates: start: 20120827
  4. BLINDED POST TRIAL THERAPY [Suspect]
     Indication: MYELODYSPLASTIC SYNDROME
     Dosage: 300 mg ,  BID,  on days 3-9
     Route: 048
     Dates: start: 20120827
  5. BLINDED PRE TRIAL THERAPY [Suspect]
     Indication: MYELODYSPLASTIC SYNDROME
     Dosage: 300 mg ,  BID,  on days 3-9
     Route: 048
     Dates: start: 20120827
  6. BLINDED VORINOSTAT [Suspect]
     Indication: MYELODYSPLASTIC SYNDROME
     Dosage: 300 mg ,  BID,  on days 3-9
     Route: 048
     Dates: start: 20120827
  7. AZACITIDINE [Suspect]
     Dosage: 300 mg ,  BID,  on days 3-9
     Route: 048
     Dates: start: 20121022
  8. LENALIDOMIDE [Suspect]
     Dosage: 300 mg ,  BID,  on days 3-9
     Route: 048
     Dates: start: 20121022
  9. BLINDED PLACEBO [Suspect]
     Dosage: 300 mg ,  BID,  on days 3-9
     Route: 048
     Dates: start: 20121022
  10. BLINDED POST TRIAL THERAPY [Suspect]
     Dosage: 300 mg ,  BID,  on days 3-9
     Route: 048
     Dates: start: 20121022
  11. BLINDED PRE TRIAL THERAPY [Suspect]
     Dosage: 300 mg ,  BID,  on days 3-9
     Route: 048
     Dates: start: 20121022
  12. BLINDED VORINOSTAT [Suspect]
     Dosage: 300 mg ,  BID,  on days 3-9
     Route: 048
     Dates: start: 20121022
  13. AZACITIDINE [Suspect]
     Indication: MYELODYSPLASTIC SYNDROME
     Dosage: 75 mg/m2 SQ or IV on days 1-7 OR 75 mg/m2 SQ or IV on days 1-5 and days 8-9
     Dates: start: 20120827
  14. AZACITIDINE [Suspect]
     Dosage: 75 mg/m2 SQ or IV on days 1-7 OR 75 mg/m2 SQ or IV on days 1-5 and days 8-9
     Dates: start: 20121022

REACTIONS (3)
  - Leukocytosis [Recovered/Resolved]
  - Neutrophil count decreased [Recovered/Resolved]
  - Platelet count decreased [Recovered/Resolved]
